FAERS Safety Report 6011451-6 (Version None)
Quarter: 2008Q4

REPORT INFORMATION
  Report Type: 
  Country: None (occurrence: None)
  Receive Date: 20081218
  Receipt Date: 20081203
  Transmission Date: 20090506
  Serious: Yes (Other)
  Sender: FDA-Public Use
  Company Number: GB-PFIZER INC-2008096192

PATIENT

DRUGS (2)
  1. CHAMPIX [Suspect]
     Route: 048
  2. ANTIHYPERTENSIVES [Concomitant]

REACTIONS (3)
  - DEPRESSION [None]
  - MANIA [None]
  - MOOD SWINGS [None]
